FAERS Safety Report 8019153-1 (Version None)
Quarter: 2012Q1

REPORT INFORMATION
  Report Type: 
  Country: None (occurrence: None)
  Receive Date: 20120103
  Receipt Date: 20111220
  Transmission Date: 20120608
  Serious: Yes (Hospitalization)
  Sender: FDA-Public Use
  Company Number: DK-JNJFOC-20111104691

PATIENT
  Sex: Male
  Weight: 81 kg

DRUGS (32)
  1. DOXORUBICIN HCL [Suspect]
     Indication: DIFFUSE LARGE B-CELL LYMPHOMA
     Route: 042
     Dates: start: 20110426
  2. CYCLOPHOSPHAMIDE [Suspect]
     Indication: DIFFUSE LARGE B-CELL LYMPHOMA
     Route: 042
     Dates: start: 20110426
  3. ACYCLOVIR [Concomitant]
     Indication: PROPHYLAXIS
     Route: 048
     Dates: start: 20110412
  4. AMLODIPINE [Concomitant]
     Indication: HYPERTENSION
     Route: 048
     Dates: start: 20110415
  5. MORPHINE [Concomitant]
     Indication: PAIN
     Route: 048
  6. PREDNISONE TAB [Suspect]
     Route: 048
     Dates: start: 20110628
  7. VINCRISTINE [Suspect]
     Route: 042
     Dates: start: 20110628
  8. RITUXIMAB [Suspect]
     Route: 042
     Dates: start: 20110426
  9. SENNOSIDE [Concomitant]
     Indication: PRODUCT USED FOR UNKNOWN INDICATION
     Route: 065
  10. DOXORUBICIN HCL [Suspect]
     Route: 042
     Dates: start: 20110628
  11. DOXORUBICIN HCL [Suspect]
     Route: 042
     Dates: start: 20110803
  12. NEUPOGEN [Suspect]
     Indication: DIFFUSE LARGE B-CELL LYMPHOMA
     Route: 058
     Dates: start: 20110804
  13. RITUXIMAB [Suspect]
     Route: 042
     Dates: start: 20110803
  14. VINCRISTINE [Suspect]
     Route: 042
     Dates: start: 20110426
  15. CYCLOPHOSPHAMIDE [Suspect]
     Route: 042
     Dates: start: 20110628
  16. CYCLOPHOSPHAMIDE [Suspect]
     Route: 042
     Dates: start: 20110803
  17. PREDNISONE TAB [Suspect]
     Indication: DIFFUSE LARGE B-CELL LYMPHOMA
     Route: 048
     Dates: start: 20110426
  18. VINCRISTINE [Suspect]
     Indication: DIFFUSE LARGE B-CELL LYMPHOMA
     Route: 042
     Dates: start: 20110803
  19. LACTULOSE [Concomitant]
     Indication: CONSTIPATION
     Route: 048
  20. MOVIPREP [Concomitant]
     Indication: CONSTIPATION
     Route: 065
  21. RITUXIMAB [Suspect]
     Indication: DIFFUSE LARGE B-CELL LYMPHOMA
     Route: 042
     Dates: start: 20110702
  22. FUROSEMIDE [Concomitant]
     Indication: POLYURIA
     Route: 048
  23. LANSOPRAZOLE [Concomitant]
     Indication: PROPHYLAXIS
     Route: 048
  24. MORPHINE SULFATE [Concomitant]
     Indication: PRODUCT USED FOR UNKNOWN INDICATION
     Route: 065
  25. NEUPOGEN [Suspect]
     Route: 058
     Dates: start: 20110427
  26. NEUPOGEN [Suspect]
     Route: 058
     Dates: start: 20110629
  27. ALLOPURINOL [Concomitant]
     Indication: PROPHYLAXIS
     Route: 048
     Dates: start: 20110412, end: 20110708
  28. PREDNISONE TAB [Suspect]
     Route: 048
     Dates: start: 20110803
  29. RITUXIMAB [Suspect]
     Route: 042
     Dates: start: 20110503
  30. RITUXIMAB [Suspect]
     Route: 042
     Dates: start: 20110628
  31. ENOXAPARIN SODIUM [Concomitant]
     Indication: PAIN
     Route: 058
     Dates: start: 20110826
  32. SULFAMETHOXAZOL AND TRIMETHOPRIM [Concomitant]
     Indication: PROPHYLAXIS
     Route: 048
     Dates: start: 20110628

REACTIONS (12)
  - WHITE BLOOD CELL COUNT DECREASED [None]
  - FEBRILE NEUTROPENIA [None]
  - PLEURAL EFFUSION [None]
  - INTERNATIONAL NORMALISED RATIO DECREASED [None]
  - PYREXIA [None]
  - BLOOD CREATININE INCREASED [None]
  - PULMONARY EMBOLISM [None]
  - MUSCLE RUPTURE [None]
  - HAEMOGLOBIN DECREASED [None]
  - BLOOD PHOSPHORUS INCREASED [None]
  - COAGULATION TIME PROLONGED [None]
  - PNEUMONIA [None]
